FAERS Safety Report 4502300-3 (Version None)
Quarter: 2004Q4

REPORT INFORMATION
  Report Type: 
  Country: None (occurrence: None)
  Receive Date: 20041116
  Receipt Date: 20041102
  Transmission Date: 20050328
  Serious: Yes (Hospitalization)
  Sender: FDA-Public Use
  Company Number: US-GLAXOSMITHKLINE-A0532207A

PATIENT
  Age: 56 Year
  Sex: Male
  Weight: 84.1 kg

DRUGS (3)
  1. LAMICTAL [Suspect]
     Indication: BIPOLAR DISORDER
     Route: 048
  2. LIPITOR [Concomitant]
     Route: 065
  3. ANTIHYPERTENSIVE [Concomitant]
     Route: 065

REACTIONS (5)
  - HEPATOSPLENOMEGALY [None]
  - LUNG INFILTRATION [None]
  - NATURAL KILLER-CELL LEUKAEMIA [None]
  - PYREXIA [None]
  - THROMBOCYTOPENIA [None]
